FAERS Safety Report 12889015 (Version 3)
Quarter: 2019Q1

REPORT INFORMATION
  Report Type: Report from Study
  Country: DE (occurrence: DE)
  Receive Date: 20161027
  Receipt Date: 20190204
  Transmission Date: 20190417
  Serious: Yes (Hospitalization, Other)
  Sender: FDA-Public Use
  Company Number: DE-INCYTE CORPORATION-2014IN002086

PATIENT

DRUGS (7)
  1. INCB018424 [Suspect]
     Active Substance: RUXOLITINIB
     Indication: MYELOFIBROSIS
     Dosage: 2 DF (20 MG), QD
     Route: 048
     Dates: start: 20120918, end: 20120930
  2. OXAZEPAM. [Concomitant]
     Active Substance: OXAZEPAM
     Indication: TENSION
     Dosage: 10 MG, QD
     Route: 065
     Dates: start: 20121130
  3. VOCADO [Concomitant]
     Active Substance: AMLODIPINE BESYLATE\OLMESARTAN MEDOXOMIL
     Indication: PULMONARY HYPERTENSION
  4. VOTUM PLUS [Concomitant]
     Active Substance: HYDROCHLOROTHIAZIDE\OLMESARTAN MEDOXOMIL
     Indication: HYPERTENSION
     Dosage: 1 DF, QD ( 40/25 MG)
     Route: 065
  5. METAMIZOLE [Concomitant]
     Active Substance: METAMIZOLE
     Indication: PAIN
     Dosage: 500 MG, QD
     Route: 065
     Dates: start: 20121001
  6. INCB018424 [Suspect]
     Active Substance: RUXOLITINIB
     Dosage: 2 DF (20 MG) QD
     Route: 048
     Dates: start: 20121025, end: 20141209
  7. VOCADO [Concomitant]
     Active Substance: AMLODIPINE BESYLATE\OLMESARTAN MEDOXOMIL
     Indication: MITRAL VALVE INCOMPETENCE
     Dosage: 1 DF, 40/5/25 MG, QD
     Route: 065
     Dates: start: 20131112

REACTIONS (5)
  - Bursitis infective [Recovered/Resolved]
  - Fall [Unknown]
  - Skin laceration [Recovered/Resolved]
  - Haemoglobin decreased [Recovered/Resolved]
  - Wound [Recovered/Resolved]

NARRATIVE: CASE EVENT DATE: 20140614
